FAERS Safety Report 13391112 (Version 3)
Quarter: 2017Q2

REPORT INFORMATION
  Report Type: Report from Study
  Country: IT (occurrence: IT)
  Receive Date: 20170331
  Receipt Date: 20170426
  Transmission Date: 20170830
  Serious: Yes (Hospitalization)
  Sender: FDA-Public Use
  Company Number: IT-009507513-1703ITA014106

PATIENT
  Age: 23 Year
  Sex: Male

DRUGS (2)
  1. PERPHENAZINE. [Suspect]
     Active Substance: PERPHENAZINE
     Dosage: 2 DOSE UNIT TOTAL, UNK
     Route: 048
     Dates: start: 20170209
  2. DEPAKIN [Suspect]
     Active Substance: VALPROATE SODIUM
     Dosage: 30 DOSE UNIT TOTAL UNK
     Route: 048
     Dates: start: 20170209

REACTIONS (3)
  - Poverty of speech [Unknown]
  - Drug use disorder [Unknown]
  - Sensorimotor disorder [Unknown]

NARRATIVE: CASE EVENT DATE: 20170209
